FAERS Safety Report 6593432-7 (Version None)
Quarter: 2010Q1

REPORT INFORMATION
  Report Type: 
  Country: None (occurrence: None)
  Receive Date: 20100222
  Receipt Date: 20090421
  Transmission Date: 20100710
  Serious: No
  Sender: FDA-Public Use
  Company Number: US-BRISTOL-MYERS SQUIBB COMPANY-14595748

PATIENT
  Age: 37 Year
  Sex: Female
  Weight: 137 kg

DRUGS (11)
  1. ORENCIA [Suspect]
     Indication: RHEUMATOID ARTHRITIS
     Dosage: THERAPY INITIATED ON 2008 + STOPPED IN THE SAME 4TREATMENTS; LAST INFUSION 10APR09
     Dates: start: 20090201
  2. TRAMADOL [Concomitant]
  3. TYLENOL (CAPLET) [Concomitant]
  4. POTASSIUM [Concomitant]
  5. HYDROCHLOROTHIAZIDE [Concomitant]
  6. KLONOPIN [Concomitant]
  7. WELLBUTRIN [Concomitant]
  8. TAGAMET [Concomitant]
  9. HUMIRA [Concomitant]
  10. METHOTREXATE [Concomitant]
  11. REMICADE [Concomitant]

REACTIONS (2)
  - JOINT EFFUSION [None]
  - PAIN [None]
